FAERS Safety Report 18355709 (Version 1)
Quarter: 2020Q4

REPORT INFORMATION
  Report Type: Spontaneous
  Country: CN (occurrence: CN)
  Receive Date: 20201007
  Receipt Date: 20201007
  Transmission Date: 20210114
  Serious: Yes (Other)
  Sender: FDA-Public Use
  Company Number: CN-PFIZER INC-2020382111

PATIENT
  Age: 69 Year
  Sex: Male
  Weight: 50 kg

DRUGS (1)
  1. ZOLOFT [Suspect]
     Active Substance: SERTRALINE HYDROCHLORIDE
     Indication: VERTIGO
     Dosage: 50 MG, 1X/DAY
     Route: 048
     Dates: start: 20200923, end: 20200925

REACTIONS (11)
  - Pruritus [Unknown]
  - Off label use [Unknown]
  - Product use in unapproved indication [Unknown]
  - Hypersensitivity [Unknown]
  - Mouth swelling [Unknown]
  - Oral mucosal erythema [Unknown]
  - Rash papular [Recovered/Resolved]
  - Rash pruritic [Recovered/Resolved]
  - Eczema [Unknown]
  - Scratch [Unknown]
  - Lip swelling [Unknown]

NARRATIVE: CASE EVENT DATE: 20200923
